FAERS Safety Report 5742476-3 (Version None)
Quarter: 2008Q2

REPORT INFORMATION
  Report Type: 
  Country: None (occurrence: None)
  Receive Date: 20080519
  Receipt Date: 20080506
  Transmission Date: 20081010
  Serious: Yes (Other)
  Sender: FDA-Public Use
  Company Number: US-NOVOPROD-275217

PATIENT

DRUGS (3)
  1. NOVOSEVEN [Suspect]
     Indication: HAEMORRHAGE
  2. APROTININ [Concomitant]
     Indication: PROPHYLAXIS
  3. HEPARIN [Concomitant]
     Indication: ANTICOAGULANT THERAPY

REACTIONS (1)
  - RENAL FAILURE [None]
